FAERS Safety Report 8371000-4 (Version None)
Quarter: 2012Q2

REPORT INFORMATION
  Report Type: 
  Country: None (occurrence: None)
  Receive Date: 20120518
  Receipt Date: 20120514
  Transmission Date: 20120825
  Serious: Yes (Other)
  Sender: FDA-Public Use
  Company Number: US-CELGENEUS-163-50794-12051587

PATIENT
  Sex: Female
  Weight: 73.548 kg

DRUGS (1)
  1. VIDAZA [Suspect]
     Indication: MYELODYSPLASTIC SYNDROME
     Dosage: 95 MILLIGRAM
     Route: 058
     Dates: start: 20120409, end: 20120504

REACTIONS (1)
  - ERYTHEMA NODOSUM [None]
